FAERS Safety Report 14774339 (Version 2)
Quarter: 2018Q2

REPORT INFORMATION
  Report Type: Report from Study
  Country: NO (occurrence: NO)
  Receive Date: 20180418
  Receipt Date: 20180518
  Transmission Date: 20180711
  Serious: Yes (Death, Other)
  Sender: FDA-Public Use
  Company Number: NO-PFIZER INC-2012058310

PATIENT
  Age: 66 Year
  Sex: Female

DRUGS (8)
  1. PARACETAMOL [Interacting]
     Active Substance: ACETAMINOPHEN
     Dosage: UNK
  2. OXAZEPAM. [Interacting]
     Active Substance: OXAZEPAM
     Dosage: UNK
  3. CODEINE [Interacting]
     Active Substance: CODEINE
     Dosage: UNK
  4. CARISOPRODOL. [Interacting]
     Active Substance: CARISOPRODOL
     Dosage: UNK
  5. DIAZEPAM. [Interacting]
     Active Substance: DIAZEPAM
     Dosage: UNK
  6. ALIMEMAZINE [Interacting]
     Active Substance: TRIMEPRAZINE
     Dosage: UNK
  7. PAROXETINE. [Interacting]
     Active Substance: PAROXETINE
     Dosage: UNK
  8. MORPHINE SULFATE. [Suspect]
     Active Substance: MORPHINE SULFATE
     Dosage: UNK

REACTIONS (2)
  - Poisoning [Fatal]
  - Drug interaction [Fatal]
